FAERS Safety Report 19118813 (Version 2)
Quarter: 2021Q2

REPORT INFORMATION
  Report Type: Spontaneous
  Country: BR (occurrence: BR)
  Receive Date: 20210409
  Receipt Date: 20210422
  Transmission Date: 20210717
  Serious: Yes (Hospitalization, Other)
  Sender: FDA-Public Use
  Company Number: BR-BAXTER-2021BAX007139

PATIENT
  Age: 70 Year
  Sex: Female

DRUGS (13)
  1. OMEPRAZOLE. [Concomitant]
     Active Substance: OMEPRAZOLE
     Indication: PRODUCT USED FOR UNKNOWN INDICATION
     Route: 065
  2. GENUXAL [Suspect]
     Active Substance: CYCLOPHOSPHAMIDE
     Dosage: CYCLICAL
     Route: 065
     Dates: start: 201709
  3. RITUXIMAB. [Suspect]
     Active Substance: RITUXIMAB
     Indication: B-CELL LYMPHOMA
     Dosage: CYCLICAL
     Route: 065
     Dates: start: 201709
  4. DOXIL [Suspect]
     Active Substance: DOXORUBICIN HYDROCHLORIDE
     Indication: B-CELL LYMPHOMA
     Dosage: CYCLICAL
     Route: 065
     Dates: start: 201706
  5. GENUXAL [Suspect]
     Active Substance: CYCLOPHOSPHAMIDE
     Indication: B-CELL LYMPHOMA
     Dosage: CYCLICAL
     Route: 065
     Dates: start: 201706
  6. DOXIL [Suspect]
     Active Substance: DOXORUBICIN HYDROCHLORIDE
     Dosage: CYCLICAL
     Route: 065
     Dates: start: 201709
  7. VINCRISTINE [Suspect]
     Active Substance: VINCRISTINE
     Indication: B-CELL LYMPHOMA
     Dosage: CYCLICAL
     Route: 065
     Dates: start: 201709
  8. BROMOPRIDE [Concomitant]
     Active Substance: BROMOPRIDE
     Indication: PRODUCT USED FOR UNKNOWN INDICATION
     Route: 065
  9. RIVAROXABAN [Concomitant]
     Active Substance: RIVAROXABAN
     Indication: PRODUCT USED FOR UNKNOWN INDICATION
     Route: 065
  10. VINCRISTINE [Suspect]
     Active Substance: VINCRISTINE
     Dosage: CYCLICAL
     Route: 065
     Dates: start: 201706
  11. CHLORTALIDONE [Concomitant]
     Active Substance: CHLORTHALIDONE
     Indication: PRODUCT USED FOR UNKNOWN INDICATION
     Route: 065
  12. RITUXIMAB. [Suspect]
     Active Substance: RITUXIMAB
     Dosage: CYCLICAL
     Route: 065
     Dates: start: 201706
  13. SULFAMETHOXAZOLE;TRIMETHOPRIM [Concomitant]
     Active Substance: SULFAMETHOXAZOLE\TRIMETHOPRIM
     Indication: PRODUCT USED FOR UNKNOWN INDICATION
     Dosage: 3X A WEEK
     Route: 065

REACTIONS (20)
  - Consciousness fluctuating [Recovered/Resolved]
  - Hypokalaemia [Recovering/Resolving]
  - Diarrhoea [Recovered/Resolved]
  - Pancytopenia [Recovered/Resolved]
  - Decreased appetite [Recovering/Resolving]
  - Sepsis [Recovering/Resolving]
  - Gastrointestinal inflammation [Recovering/Resolving]
  - Acute kidney injury [Recovered/Resolved]
  - Hypomagnesaemia [Recovering/Resolving]
  - Malaise [Recovering/Resolving]
  - Monoparesis [Recovered/Resolved]
  - Hypophosphataemia [Recovering/Resolving]
  - Stomatitis [Recovering/Resolving]
  - Osmotic demyelination syndrome [Recovering/Resolving]
  - Dysarthria [Recovered/Resolved]
  - Hypernatraemia [Recovering/Resolving]
  - Mouth ulceration [Recovering/Resolving]
  - Fatigue [Recovering/Resolving]
  - Febrile neutropenia [Recovering/Resolving]
  - Hyporeflexia [Recovered/Resolved]

NARRATIVE: CASE EVENT DATE: 2017
